FAERS Safety Report 4978508-X (Version None)
Quarter: 2006Q2

REPORT INFORMATION
  Report Type: 
  Country: None (occurrence: None)
  Receive Date: 20060420
  Receipt Date: 20060412
  Transmission Date: 20061013
  Serious: Yes (Life-Threatening)
  Sender: FDA-Public Use
  Company Number: GR-ABBOTT-06P-066-0330651-00

PATIENT
  Age: 73 Year
  Sex: Male
  Weight: 74 kg

DRUGS (7)
  1. KLARICID TABLETS [Suspect]
     Indication: BRONCHOPNEUMONIA
     Route: 048
     Dates: start: 20060327, end: 20060410
  2. CEFUROXIME AXETIL [Concomitant]
     Indication: BRONCHOPNEUMONIA
     Route: 048
     Dates: start: 20060327, end: 20060403
  3. MONTELUKAST SODIUM [Concomitant]
     Indication: BRONCHOPNEUMONIA
     Route: 048
     Dates: start: 20060327, end: 20060406
  4. BREVA [Concomitant]
     Indication: BRONCHOPNEUMONIA
     Route: 055
     Dates: start: 20060327, end: 20060403
  5. SALBUTAMOL SULFATE [Concomitant]
     Indication: BRONCHOPNEUMONIA
     Route: 055
     Dates: start: 20060327
  6. SERETIDE [Concomitant]
     Indication: BRONCHOPNEUMONIA
     Route: 055
     Dates: start: 20060404
  7. MADOPAR [Concomitant]
     Indication: PARKINSONISM
     Dosage: 200+50 MILLIGRAM
     Route: 048
     Dates: start: 20030101

REACTIONS (3)
  - AORTIC ANEURYSM [None]
  - BRADYCARDIA [None]
  - ELECTROCARDIOGRAM QT PROLONGED [None]
